FAERS Safety Report 16771237 (Version 2)
Quarter: 2019Q3

REPORT INFORMATION
  Report Type: Spontaneous
  Country: US (occurrence: US)
  Receive Date: 20190904
  Receipt Date: 20190930
  Transmission Date: 20191005
  Serious: No
  Sender: FDA-Public Use
  Company Number: US-ALNYLAM PHARMACEUTICALS, INC.-ALN-2019-000579

PATIENT
  Age: 69 Year
  Sex: Female

DRUGS (2)
  1. ONPATTRO [Suspect]
     Active Substance: PATISIRAN SODIUM
     Indication: HEREDITARY NEUROPATHIC AMYLOIDOSIS
     Dosage: UNK
     Route: 042
     Dates: start: 20190731
  2. DIPHENHYDRAMINE. [Suspect]
     Active Substance: DIPHENHYDRAMINE
     Indication: PROPHYLAXIS
     Dosage: UNK
     Dates: start: 20190731

REACTIONS (10)
  - Chest pain [Recovered/Resolved]
  - Paraesthesia [Recovered/Resolved]
  - Dizziness [Unknown]
  - Somnolence [Unknown]
  - Crying [Unknown]
  - Diarrhoea [Unknown]
  - Infusion related reaction [Unknown]
  - Mood altered [Unknown]
  - Paraesthesia [Unknown]
  - Affect lability [Unknown]

NARRATIVE: CASE EVENT DATE: 20190731
